FAERS Safety Report 22172310 (Version 1)
Quarter: 2023Q2

REPORT INFORMATION
  Report Type: Spontaneous
  Country: US (occurrence: US)
  Receive Date: 20230404
  Receipt Date: 20230404
  Transmission Date: 20230722
  Serious: No
  Sender: FDA-Public Use
  Company Number: US-009507513-2303USA002609

PATIENT
  Age: 74 Year
  Sex: Female

DRUGS (3)
  1. TRUSOPT [Suspect]
     Active Substance: DORZOLAMIDE HYDROCHLORIDE
     Indication: Macular hole
     Dosage: IN THE RIGHT EYE, THREE TIMES A DAY
     Route: 047
  2. PREDNISOLONE ACETATE [Concomitant]
     Active Substance: PREDNISOLONE ACETATE
     Indication: Macular hole
     Dosage: IN THE RIGHT EYE, FOUR TIMES PER DAY
     Route: 047
  3. KETOROLAC [Concomitant]
     Active Substance: KETOROLAC TROMETHAMINE
     Indication: Macular hole
     Dosage: IN THE LEFT EYE, FOUR TIMES PER DAY
     Route: 047

REACTIONS (1)
  - Product use in unapproved indication [Unknown]
